FAERS Safety Report 4620153-X (Version None)
Quarter: 2005Q1

REPORT INFORMATION
  Report Type: 
  Country: None (occurrence: None)
  Receive Date: 20050322
  Receipt Date: 20050322
  Transmission Date: 20050727
  Serious: No
  Sender: FDA-Public Use
  Company Number: None

PATIENT
  Age: 10 Year
  Sex: Male
  Weight: 36.2878 kg

DRUGS (1)
  1. ADDERALL XR 10 [Suspect]

REACTIONS (6)
  - ANOREXIA [None]
  - BLOOD PRESSURE INCREASED [None]
  - HEADACHE [None]
  - SOMNOLENCE [None]
  - STOMACH DISCOMFORT [None]
  - WEIGHT DECREASED [None]
